FAERS Safety Report 11143914 (Version 4)
Quarter: 2016Q2

REPORT INFORMATION
  Report Type: Spontaneous
  Country: JP (occurrence: JP)
  Receive Date: 20150526
  Receipt Date: 20160502
  Transmission Date: 20160815
  Serious: Yes (Hospitalization)
  Sender: FDA-Public Use
  Company Number: PHJP2015JP008255

PATIENT
  Age: 44 Year
  Sex: Male
  Weight: 70 kg

DRUGS (16)
  1. BENZA [Concomitant]
     Indication: NASOPHARYNGITIS
     Dosage: 2 DF, QD
     Route: 065
  2. PREDONINE [Suspect]
     Active Substance: PREDNISOLONE\PREDNISOLONE ACETATE\PREDNISOLONE SODIUM SUCCINATE
     Dosage: REDUCED BY 1 DF (EACH EVERY 1 TO 2 WEEKS)
     Route: 048
  3. TERNELIN [Concomitant]
     Active Substance: TIZANIDINE
     Indication: HYPOAESTHESIA
     Dosage: 1 MG, TID
     Route: 048
  4. TEGRETOL [Concomitant]
     Active Substance: CARBAMAZEPINE
     Indication: GAIT DISTURBANCE
     Dosage: 100 MG, BID
     Route: 048
  5. CYMBALTA [Concomitant]
     Active Substance: DULOXETINE HYDROCHLORIDE
     Indication: HYPOAESTHESIA
     Dosage: 20 MG, QD
     Route: 048
  6. PREDONINE [Suspect]
     Active Substance: PREDNISOLONE\PREDNISOLONE ACETATE\PREDNISOLONE SODIUM SUCCINATE
     Indication: MULTIPLE SCLEROSIS RELAPSE PROPHYLAXIS
     Dosage: 25 MG, QD
     Route: 048
     Dates: start: 20141224
  7. TEGRETOL [Concomitant]
     Active Substance: CARBAMAZEPINE
     Indication: HYPOAESTHESIA
  8. LOXOPROFEN [Concomitant]
     Active Substance: LOXOPROFEN
     Indication: GAIT DISTURBANCE
     Dosage: 60 MG, TID
     Route: 048
  9. GILENYA [Suspect]
     Active Substance: FINGOLIMOD HYDROCHLORIDE
     Indication: MULTIPLE SCLEROSIS RELAPSE PROPHYLAXIS
     Dosage: 0.5 MG, QD
     Route: 048
     Dates: start: 20141224, end: 20150507
  10. GABAPEN [Concomitant]
     Active Substance: GABAPENTIN
     Indication: HYPOAESTHESIA
     Dosage: 400 MG, TID
     Route: 048
  11. GABAPEN [Concomitant]
     Active Substance: GABAPENTIN
     Indication: GAIT DISTURBANCE
  12. TEPRENONE [Concomitant]
     Active Substance: TEPRENONE
     Indication: HYPOAESTHESIA
     Dosage: 50 MG, TID
     Route: 048
  13. TEPRENONE [Concomitant]
     Active Substance: TEPRENONE
     Indication: GAIT DISTURBANCE
  14. MEXITIL [Concomitant]
     Active Substance: MEXILETINE HYDROCHLORIDE
     Indication: HYPOAESTHESIA
     Dosage: 100 MG, TID
     Route: 048
  15. LANSOPRAZOLE. [Concomitant]
     Active Substance: LANSOPRAZOLE
     Indication: PROPHYLAXIS AGAINST GASTROINTESTINAL ULCER
     Dosage: 30 MG, QD
     Route: 048
  16. METHYCOBAL [Concomitant]
     Active Substance: METHYLCOBALAMIN
     Indication: HYPOAESTHESIA
     Dosage: 500 UG, TID
     Route: 048

REACTIONS (2)
  - Eosinophil count increased [Recovered/Resolved]
  - Seasonal allergy [Unknown]

NARRATIVE: CASE EVENT DATE: 20150507
